FAERS Safety Report 7687931-4 (Version None)
Quarter: 2011Q3

REPORT INFORMATION
  Report Type: 
  Country: None (occurrence: None)
  Receive Date: 20110816
  Receipt Date: 20110816
  Transmission Date: 20111222
  Serious: Yes (Hospitalization)
  Sender: FDA-Public Use
  Company Number: None

PATIENT
  Age: 74 Year
  Sex: Male
  Weight: 109.4 kg

DRUGS (2)
  1. BUPROPION HCL [Suspect]
     Dosage: 150 MG BID PO
     Route: 048
     Dates: start: 20100727, end: 20100826
  2. LISINOPRIL [Suspect]
     Indication: HYPERTENSION
     Dosage: 20 MG BID PO
     Route: 048
     Dates: start: 19990928, end: 20100826

REACTIONS (1)
  - ANAPHYLACTIC REACTION [None]
